FAERS Safety Report 17424823 (Version 1)
Quarter: 2020Q1

REPORT INFORMATION
  Report Type: Spontaneous
  Country: US (occurrence: US)
  Receive Date: 20200217
  Receipt Date: 20200217
  Transmission Date: 20200409
  Serious: Yes (Hospitalization)
  Sender: FDA-Public Use
  Company Number: US-SUN PHARMACEUTICAL INDUSTRIES LTD-2020R1-235883

PATIENT
  Age: 60 Year
  Sex: Male

DRUGS (3)
  1. IFOSPHAMIDE [Suspect]
     Active Substance: IFOSFAMIDE
     Indication: LYMPHOMA
     Dosage: UNK
     Route: 065
  2. CARBOPLATIN. [Suspect]
     Active Substance: CARBOPLATIN
     Indication: LYMPHOMA
     Dosage: UNK
     Route: 065
  3. ETOPOSIDE. [Suspect]
     Active Substance: ETOPOSIDE
     Indication: LYMPHOMA
     Dosage: UNK
     Route: 065

REACTIONS (2)
  - Cellulitis gangrenous [Recovering/Resolving]
  - Candida infection [Recovering/Resolving]
